FAERS Safety Report 4888144-1 (Version None)
Quarter: 2006Q1

REPORT INFORMATION
  Report Type: 
  Country: None (occurrence: None)
  Receive Date: 20060119
  Receipt Date: 20060106
  Transmission Date: 20060701
  Serious: Yes (Other)
  Sender: FDA-Public Use
  Company Number: 2006005523

PATIENT
  Sex: Male
  Weight: 102.0593 kg

DRUGS (10)
  1. NEURONTIN [Suspect]
     Indication: NEUROPATHY
     Dosage: 2400 MG (800 MG, 3 IN 1 D), ORAL
     Route: 048
  2. MECLIZINE [Concomitant]
  3. SOTALOL HCL [Concomitant]
  4. ALL OTHER THERAPEUTIC PRODUCTS (ALL OTHER THERAPEUTIC PRODUCTS) [Concomitant]
  5. ZOCOR [Concomitant]
  6. ZYRTEC [Concomitant]
  7. ALLOPURINOL [Concomitant]
  8. WARFARIN SODIUM [Concomitant]
  9. POTASSIUM  (POTASSIUM) [Concomitant]
  10. RANITIDINE HCL [Concomitant]

REACTIONS (7)
  - CONDITION AGGRAVATED [None]
  - GAIT DISTURBANCE [None]
  - HEADACHE [None]
  - HYPERSOMNIA [None]
  - NEUROPATHY [None]
  - SINUS DISORDER [None]
  - THERAPY NON-RESPONDER [None]
